FAERS Safety Report 13550488 (Version 1)
Quarter: 2017Q2

REPORT INFORMATION
  Report Type: Spontaneous
  Country: US (occurrence: US)
  Receive Date: 20170516
  Receipt Date: 20170516
  Transmission Date: 20170830
  Serious: Yes (Hospitalization)
  Sender: FDA-Public Use
  Company Number: None

PATIENT
  Age: 81 Year
  Sex: Male
  Weight: 73 kg

DRUGS (4)
  1. LAMICTAL [Concomitant]
     Active Substance: LAMOTRIGINE
  2. CALCIUM CARB W/VITD2 [Concomitant]
  3. DILANTIN [Suspect]
     Active Substance: PHENYTOIN
     Indication: EPILEPSY
     Dosage: CHRONIC 100MG ER TID PO
     Route: 048
  4. ECOTRIN [Concomitant]
     Active Substance: ASPIRIN

REACTIONS (5)
  - Dysarthria [None]
  - Gait disturbance [None]
  - Nystagmus [None]
  - Toxicity to various agents [None]
  - Blepharospasm [None]

NARRATIVE: CASE EVENT DATE: 20160316
